FAERS Safety Report 5607608-6 (Version None)
Quarter: 2008Q1

REPORT INFORMATION
  Report Type: 
  Country: None (occurrence: None)
  Receive Date: 20080125
  Receipt Date: 20080110
  Transmission Date: 20080703
  Serious: Yes (Death, Hospitalization, Other)
  Sender: FDA-Public Use
  Company Number: 2008BI000730

PATIENT
  Sex: Male

DRUGS (4)
  1. ZEVALIN [Suspect]
     Indication: DIFFUSE LARGE B-CELL LYMPHOMA
     Dosage: 56 MBQ/KG; ; IV
     Route: 042
  2. RITUXIMAB [Concomitant]
  3. RITUXIMAB [Concomitant]
  4. ANTIBIOTIC PROPHYLAXIS [Concomitant]

REACTIONS (14)
  - CARDIAC FAILURE CONGESTIVE [None]
  - DISEASE PROGRESSION [None]
  - DISEASE RECURRENCE [None]
  - HAEMATOTOXICITY [None]
  - HEPATITIS C [None]
  - HEPATOTOXICITY [None]
  - HERPES ZOSTER [None]
  - INFUSION RELATED REACTION [None]
  - LIVER DISORDER [None]
  - MULTI-ORGAN FAILURE [None]
  - NEUTROPENIA [None]
  - PNEUMONIA BACTERIAL [None]
  - SEPSIS [None]
  - THROMBOCYTOPENIA [None]
